FAERS Safety Report 4470710-9 (Version None)
Quarter: 2004Q4

REPORT INFORMATION
  Report Type: 
  Country: None (occurrence: None)
  Receive Date: 20041006
  Receipt Date: 20040927
  Transmission Date: 20050328
  Serious: No
  Sender: FDA-Public Use
  Company Number: 2004UW20262

PATIENT
  Age: 88 Year
  Sex: Female

DRUGS (10)
  1. SEROQUEL [Suspect]
     Dosage: 25 MG DAILY
  2. ZYPREXA [Suspect]
     Dosage: 3.75 MG DAILY
  3. PHENYTOIN [Suspect]
     Dosage: 300 MG DAILY PO
     Route: 048
  4. CITALOPRAM [Suspect]
     Dosage: 40 MG DAILY PO
     Route: 048
  5. ARICEPT [Suspect]
     Dosage: 10 MG DAILY PO
     Route: 048
  6. CRESTOR [Concomitant]
  7. ACETAMINOPHEN [Concomitant]
  8. ASPIRIN [Concomitant]
  9. MULTI-VITAMINS [Concomitant]
  10. SENNA [Concomitant]

REACTIONS (3)
  - DEPRESSED LEVEL OF CONSCIOUSNESS [None]
  - MUSCULOSKELETAL STIFFNESS [None]
  - OPISTHOTONUS [None]
